FAERS Safety Report 19206500 (Version 1)
Quarter: 2021Q2

REPORT INFORMATION
  Report Type: Spontaneous
  Country: US (occurrence: US)
  Receive Date: 20210503
  Receipt Date: 20210503
  Transmission Date: 20210717
  Serious: Yes (Hospitalization)
  Sender: FDA-Public Use
  Company Number: None

PATIENT
  Age: 59 Year
  Sex: Female

DRUGS (20)
  1. FISH OIL [Concomitant]
     Active Substance: FISH OIL
  2. METFORMIN ER [Concomitant]
     Active Substance: METFORMIN HYDROCHLORIDE
  3. NUCYNTA ER [Concomitant]
     Active Substance: TAPENTADOL HYDROCHLORIDE
  4. OMEGA 3?ACID [Concomitant]
  5. CHLORTHALID [Concomitant]
     Active Substance: CHLORTHALIDONE
  6. PREDNISONE. [Concomitant]
     Active Substance: PREDNISONE
  7. SPIRIVA HANDHLR [Concomitant]
  8. ZOFRAN [Concomitant]
     Active Substance: ONDANSETRON HYDROCHLORIDE
     Indication: IDIOPATHIC PULMONARY FIBROSIS
     Dates: start: 20180126
  9. ESBRIET [Suspect]
     Active Substance: PIRFENIDONE
     Indication: IDIOPATHIC PULMONARY FIBROSIS
     Route: 048
     Dates: start: 20180126
  10. CYMBALTA [Concomitant]
     Active Substance: DULOXETINE HYDROCHLORIDE
  11. TRICOR [Concomitant]
     Active Substance: FENOFIBRATE
  12. DIAZEPAM. [Concomitant]
     Active Substance: DIAZEPAM
  13. DICLOFENAC GEL [Concomitant]
     Active Substance: DICLOFENAC
  14. VITAMIN D [Concomitant]
     Active Substance: VITAMIN D NOS
  15. CLONAZEPAM. [Concomitant]
     Active Substance: CLONAZEPAM
  16. GABAPENTIN. [Concomitant]
     Active Substance: GABAPENTIN
  17. TIZANIDINE. [Concomitant]
     Active Substance: TIZANIDINE
  18. VITAMIN B12 [Concomitant]
     Active Substance: CYANOCOBALAMIN
  19. PROAIR HFA [Concomitant]
     Active Substance: ALBUTEROL SULFATE
  20. RANITIDINE. [Concomitant]
     Active Substance: RANITIDINE

REACTIONS (1)
  - Device occlusion [None]

NARRATIVE: CASE EVENT DATE: 20210427
